FAERS Safety Report 14941133 (Version 1)
Quarter: 2018Q2

REPORT INFORMATION
  Report Type: Spontaneous
  Country: US (occurrence: US)
  Receive Date: 20180525
  Receipt Date: 20180525
  Transmission Date: 20180711
  Serious: Yes (Hospitalization, Other)
  Sender: FDA-Public Use
  Company Number: US-SAOL THERAPEUTICS-2018SAO00551

PATIENT
  Age: 61 Year
  Sex: Female
  Weight: 68.7 kg

DRUGS (17)
  1. OCREVUS IN NACL 0.9% [Concomitant]
     Dosage: 300 MG, AS DIRECTED
     Route: 042
  2. OXYBUTYNIN. [Concomitant]
     Active Substance: OXYBUTYNIN CHLORIDE
     Dosage: 10 MG, 1X/DAY
     Route: 048
  3. CHOLECALCIFEROL [Concomitant]
     Active Substance: CHOLECALCIFEROL
     Dosage: 1 TABLETS, 2X/DAY
     Route: 048
  4. MIRABEGRON ER [Concomitant]
     Active Substance: MIRABEGRON
  5. LIORESAL [Suspect]
     Active Substance: BACLOFEN
     Indication: MUSCLE SPASTICITY
     Dosage: 75 ?G, \DAY
     Route: 037
     Dates: start: 20140728
  6. GABAPENTIN. [Concomitant]
     Active Substance: GABAPENTIN
     Dosage: 1 TABLETS, 2X/DAY
     Route: 048
  7. OCUVITE [Concomitant]
     Active Substance: VITAMINS
     Dosage: 1 CAPSULES, 1X/DAY
     Route: 048
  8. OXYCODONE-ACETAMINOPHEN [Concomitant]
     Active Substance: ACETAMINOPHEN\OXYCODONE HYDROCHLORIDE
     Dosage: 1 TABLETS, AS NEEDED
     Route: 048
  9. BIOTENE DRY MOUTH [Concomitant]
  10. LIORESAL [Suspect]
     Active Substance: BACLOFEN
     Indication: MULTIPLE SCLEROSIS
  11. SENNOSIDES. [Concomitant]
     Active Substance: SENNOSIDES
     Dosage: 1 TABLETS, 1X/DAY
     Route: 048
  12. CEPHALEXIN. [Concomitant]
     Active Substance: CEPHALEXIN
     Dosage: 1 CAPSULES, 4X/DAY
     Route: 048
  13. OCRELIZUMAB 300MG/10ML SOLUTION [Concomitant]
     Dosage: 20 ML, 2X/YEAR
     Route: 042
  14. DOCUSATE [Concomitant]
     Active Substance: DOCUSATE
     Dosage: 1 CAPSULES, 2X/DAY
     Route: 048
  15. MULTIVITAMIN [Concomitant]
     Active Substance: VITAMINS
     Dosage: 1 CAPSULES, 1X/DAY
     Route: 048
  16. ONDANSETRON [Concomitant]
     Active Substance: ONDANSETRON
     Dosage: 1 TABLETS, AS NEEDED
     Route: 048
  17. ACETAMIINOPHEN [Concomitant]
     Dosage: 2 TABLETS, 6X/DAY
     Route: 048

REACTIONS (10)
  - Adrenal neoplasm [Unknown]
  - Cholelithiasis [Unknown]
  - Device malfunction [Recovered/Resolved]
  - Muscle spasms [Recovered/Resolved]
  - Thrombophlebitis superficial [Unknown]
  - Diverticulum intestinal [Unknown]
  - Musculoskeletal stiffness [Unknown]
  - Alanine aminotransferase decreased [Unknown]
  - Therapy non-responder [Recovered/Resolved]
  - Gait disturbance [Unknown]

NARRATIVE: CASE EVENT DATE: 20150302
